FAERS Safety Report 23535456 (Version 1)
Quarter: 2024Q1

REPORT INFORMATION
  Report Type: Spontaneous
  Country: CN (occurrence: None)
  Receive Date: 20240218
  Receipt Date: 20240218
  Transmission Date: 20240410
  Serious: Yes (Death, Other)
  Sender: FDA-Public Use
  Company Number: 2024A039207

PATIENT
  Age: 63 Year
  Sex: Female

DRUGS (1)
  1. GEFITINIB [Suspect]
     Active Substance: GEFITINIB
     Indication: Lung adenocarcinoma
     Route: 048

REACTIONS (7)
  - Malignant neoplasm progression [Fatal]
  - Respiratory failure [Fatal]
  - Acute respiratory distress syndrome [Fatal]
  - Acute pulmonary oedema [Fatal]
  - Malignant pleural effusion [Unknown]
  - Small cell lung cancer [Unknown]
  - Drug resistance [Unknown]
